FAERS Safety Report 10367660 (Version 1)
Quarter: 2014Q3

REPORT INFORMATION
  Report Type: Spontaneous
  Country: US (occurrence: None)
  Receive Date: 20140806
  Receipt Date: 20140806
  Transmission Date: 20150326
  Serious: No
  Sender: FDA-Public Use
  Company Number: DL2014-0676

PATIENT
  Age: 28 Year
  Sex: Female

DRUGS (3)
  1. MIFEPRISTONE TABLETS, 200 MG [Suspect]
     Active Substance: MIFEPRISTONE
     Indication: ABORTION INDUCED
     Route: 048
     Dates: start: 20140607
  2. METRONIDAZOLE 500 MG [Concomitant]
  3. MISOPROSTOL TABLETS, 200 MCG [Suspect]
     Active Substance: MISOPROSTOL
     Route: 002
     Dates: start: 20140608, end: 20140625

REACTIONS (10)
  - Muscle spasms [None]
  - Haemorrhage [None]
  - Asthenia [None]
  - Abortion incomplete [None]
  - Headache [None]
  - Pain [None]
  - Vomiting [None]
  - Anaemia [None]
  - Syncope [None]
  - Nausea [None]

NARRATIVE: CASE EVENT DATE: 20140621
